FAERS Safety Report 12633098 (Version 2)
Quarter: 2016Q3

REPORT INFORMATION
  Report Type: Spontaneous
  Country: US (occurrence: US)
  Receive Date: 20160808
  Receipt Date: 20160808
  Transmission Date: 20161109
  Serious: No
  Sender: FDA-Public Use
  Company Number: US-BEH-2016058431

PATIENT
  Sex: Female
  Weight: 53 kg

DRUGS (20)
  1. LIDOCAINE. [Concomitant]
     Active Substance: LIDOCAINE
  2. LORAZEPAM. [Concomitant]
     Active Substance: LORAZEPAM
  3. LEXAPRO [Concomitant]
     Active Substance: ESCITALOPRAM OXALATE
  4. PROAIR HFA [Concomitant]
     Active Substance: ALBUTEROL SULFATE
  5. GRAPE SEED [Concomitant]
  6. HIZENTRA [Suspect]
     Active Substance: HUMAN IMMUNOGLOBULIN G
     Route: 058
  7. DIPHENHYDRAMINE. [Concomitant]
     Active Substance: DIPHENHYDRAMINE
  8. LIDOCAINE. [Concomitant]
     Active Substance: LIDOCAINE
  9. LIOTHYRONINE [Concomitant]
     Active Substance: LIOTHYRONINE
  10. LUNESTA [Concomitant]
     Active Substance: ESZOPICLONE
  11. DHEA [Concomitant]
     Active Substance: PRASTERONE
  12. HIZENTRA [Suspect]
     Active Substance: HUMAN IMMUNOGLOBULIN G
     Route: 058
     Dates: start: 20141203
  13. CETIRIZINE [Concomitant]
     Active Substance: CETIRIZINE HYDROCHLORIDE
  14. LEVOTHYROXINE. [Concomitant]
     Active Substance: LEVOTHYROXINE
  15. HYDROCORTISONE. [Concomitant]
     Active Substance: HYDROCORTISONE
  16. VITAMIN D [Concomitant]
     Active Substance: CHOLECALCIFEROL
  17. VITAMIN C [Concomitant]
     Active Substance: ASCORBIC ACID
  18. HIZENTRA [Suspect]
     Active Substance: HUMAN IMMUNOGLOBULIN G
     Indication: IMMUNODEFICIENCY COMMON VARIABLE
     Route: 058
  19. EPIPEN [Concomitant]
     Active Substance: EPINEPHRINE
  20. NYSTATIN. [Concomitant]
     Active Substance: NYSTATIN

REACTIONS (1)
  - Sinusitis [Unknown]
